FAERS Safety Report 20074855 (Version 1)
Quarter: 2021Q4

REPORT INFORMATION
  Report Type: Spontaneous
  Country: US (occurrence: US)
  Receive Date: 20211116
  Receipt Date: 20211116
  Transmission Date: 20220303
  Serious: No
  Sender: FDA-Public Use
  Company Number: US-SA-SAC20211110000036

PATIENT
  Sex: Female
  Weight: 48 kg

DRUGS (12)
  1. DUPIXENT [Suspect]
     Active Substance: DUPILUMAB
     Indication: Dermatitis atopic
     Dosage: 200 MG, QOW
     Route: 058
  2. TRAZODONE [Concomitant]
     Active Substance: TRAZODONE HYDROCHLORIDE
  3. FLONASE SENSIMIST ALLERGY RELIEF [Concomitant]
     Active Substance: FLUTICASONE FUROATE
  4. ESCITALOPRAM OXALATE [Concomitant]
     Active Substance: ESCITALOPRAM OXALATE
  5. DEXTROAMPHETAMINE SULFATE [Concomitant]
     Active Substance: DEXTROAMPHETAMINE SULFATE
     Dosage: 10MG
  6. BETAMETHASONE ACETATE [Concomitant]
     Active Substance: BETAMETHASONE ACETATE
  7. CLOBETASOL [Concomitant]
     Active Substance: CLOBETASOL
  8. LAMOTRIGINE [Concomitant]
     Active Substance: LAMOTRIGINE
  9. PIMECROLIMUS [Concomitant]
     Active Substance: PIMECROLIMUS
  10. DIFFERIN [Concomitant]
     Active Substance: ADAPALENE
  11. ELIDEL [Concomitant]
     Active Substance: PIMECROLIMUS
  12. HYDROXYZINE HYDROCHLORIDE [Concomitant]
     Active Substance: HYDROXYZINE HYDROCHLORIDE
     Dosage: 25MG

REACTIONS (3)
  - Nasopharyngitis [Unknown]
  - Injection site reaction [Unknown]
  - Injection site induration [Unknown]
